FAERS Safety Report 8225432-5 (Version None)
Quarter: 2012Q1

REPORT INFORMATION
  Report Type: 
  Country: None (occurrence: None)
  Receive Date: 20120321
  Receipt Date: 20120309
  Transmission Date: 20120608
  Serious: Yes (Hospitalization)
  Sender: FDA-Public Use
  Company Number: US-ELI_LILLY_AND_COMPANY-US201203002931

PATIENT
  Age: 52 Year
  Sex: Female

DRUGS (6)
  1. EFFIENT [Suspect]
     Indication: PERIPHERAL ARTERIAL OCCLUSIVE DISEASE
     Dosage: 10 MG, QD
     Dates: start: 20100101
  2. SINGULAIR [Concomitant]
     Dosage: 10 MG, QD
  3. ZOCOR [Concomitant]
     Dosage: 80 MG, EACH EVENING
  4. ZOLOFT [Concomitant]
     Dosage: 50 MG, UNK
  5. ASPIRIN [Concomitant]
     Dosage: 325 MG, UNK
  6. ADVAIR DISKUS 100/50 [Concomitant]
     Dosage: 250/50

REACTIONS (5)
  - CAROTID ARTERY OCCLUSION [None]
  - FEAR OF DEATH [None]
  - THROMBOSIS IN DEVICE [None]
  - THROMBOSIS [None]
  - DRUG DOSE OMISSION [None]
